FAERS Safety Report 21248752 (Version 3)
Quarter: 2022Q4

REPORT INFORMATION
  Report Type: Report from Study
  Country: US (occurrence: US)
  Receive Date: 20220824
  Receipt Date: 20221205
  Transmission Date: 20230113
  Serious: Yes (Hospitalization, Other)
  Sender: FDA-Public Use
  Company Number: US-TAKEDA-2022TUS058729

PATIENT
  Age: 54 Year
  Sex: Female

DRUGS (31)
  1. TEDUGLUTIDE [Suspect]
     Active Substance: TEDUGLUTIDE
     Indication: Short-bowel syndrome
     Dosage: 3.8 MILLIGRAM, QD
     Route: 042
     Dates: start: 20211005
  2. TEDUGLUTIDE [Suspect]
     Active Substance: TEDUGLUTIDE
     Indication: Short-bowel syndrome
     Dosage: 3.8 MILLIGRAM, QD
     Route: 042
     Dates: start: 20211005
  3. TEDUGLUTIDE [Suspect]
     Active Substance: TEDUGLUTIDE
     Indication: Short-bowel syndrome
     Dosage: 3.8 MILLIGRAM, QD
     Route: 042
     Dates: start: 20211005
  4. TEDUGLUTIDE [Suspect]
     Active Substance: TEDUGLUTIDE
     Indication: Short-bowel syndrome
     Dosage: 3.8 MILLIGRAM, QD
     Route: 042
     Dates: start: 20211005
  5. VANCOMYCIN [Concomitant]
     Active Substance: VANCOMYCIN
     Indication: COVID-19
     Dosage: 750 MILLIGRAM, Q12H
     Route: 042
     Dates: start: 20220810, end: 20220817
  6. CREON [Concomitant]
     Active Substance: PANCRELIPASE AMYLASE\PANCRELIPASE LIPASE\PANCRELIPASE PROTEASE
     Indication: Mineral deficiency
     Dosage: 24000 INTERNATIONAL UNIT, QD
     Route: 048
     Dates: start: 20201005
  7. PYRIDOXINE HYDROCHLORIDE [Concomitant]
     Active Substance: PYRIDOXINE HYDROCHLORIDE
     Indication: Mineral deficiency
     Dosage: 25 MILLIGRAM, QD
     Route: 048
     Dates: start: 20200521
  8. ATROPINE SULFATE [Concomitant]
     Active Substance: ATROPINE SULFATE
     Indication: Diarrhoea
     Dosage: 2.5 MILLIGRAM
     Route: 048
     Dates: start: 20220515
  9. ONDANSETRON [Concomitant]
     Active Substance: ONDANSETRON
     Indication: Nausea
     Dosage: 4 MILLIGRAM
     Route: 048
     Dates: start: 20160131, end: 20220812
  10. ONDANSETRON [Concomitant]
     Active Substance: ONDANSETRON
     Dosage: 8 UNK
     Route: 050
     Dates: start: 20220812
  11. ZOLOFT [Concomitant]
     Active Substance: SERTRALINE HYDROCHLORIDE
     Indication: Depression
     Dosage: 50 MILLIGRAM, QD
     Route: 048
     Dates: start: 2014
  12. ALBUTEROL [Concomitant]
     Active Substance: ALBUTEROL
     Indication: Asthma
     Dosage: 90 UNK
     Route: 055
     Dates: start: 20151214
  13. LISINOPRIL [Concomitant]
     Active Substance: LISINOPRIL
     Indication: Hypertension
     Dosage: 20 MILLIGRAM, QD
     Route: 048
     Dates: start: 20170114
  14. HYDROCHLOROTHIAZIDE [Concomitant]
     Active Substance: HYDROCHLOROTHIAZIDE
     Indication: Hypertension
     Dosage: 25 MILLIGRAM, QD
     Route: 048
     Dates: start: 20170114
  15. ELIQUIS [Concomitant]
     Active Substance: APIXABAN
     Indication: Deep vein thrombosis
     Dosage: 5 MILLIGRAM, QD
     Route: 048
     Dates: start: 20210825
  16. BUDESONIDE\FORMOTEROL\GLYCOPYRRONIUM [Concomitant]
     Active Substance: BUDESONIDE\FORMOTEROL\GLYCOPYRRONIUM
     Indication: Asthma
     Dosage: 160 UNK, QD
     Route: 048
     Dates: start: 20210323
  17. CALCIUM CARBONATE [Concomitant]
     Active Substance: CALCIUM CARBONATE
     Indication: Mineral deficiency
     Dosage: 1200 MILLIGRAM, QD
     Route: 048
     Dates: start: 20200521
  18. ASCORBIC ACID [Concomitant]
     Active Substance: ASCORBIC ACID
     Indication: Mineral deficiency
     Dosage: 250 MILLIGRAM, QD
     Route: 048
     Dates: start: 20200521
  19. DIPHENOXYLATE [Concomitant]
     Active Substance: DIPHENOXYLATE
     Indication: Diarrhoea
     Dosage: 2.5 MILLIGRAM
     Route: 048
     Dates: start: 20220515
  20. ATROPINE [Concomitant]
     Active Substance: ATROPINE
     Indication: Diarrhoea
     Dosage: 2.5 MILLIGRAM
     Route: 048
     Dates: start: 20220515
  21. ACETAMINOPHEN [Concomitant]
     Active Substance: ACETAMINOPHEN
     Indication: Pain
     Dosage: 650 MILLIGRAM
     Route: 048
     Dates: start: 20220815
  22. FERROUS SULFATE [Concomitant]
     Active Substance: FERROUS SULFATE
     Indication: Mineral deficiency
     Dosage: 325 MILLIGRAM, BID
     Route: 048
     Dates: start: 20220112
  23. LOPERAMIDE [Concomitant]
     Active Substance: LOPERAMIDE
     Indication: Diarrhoea
     Dosage: 2 MILLIGRAM, TID
     Route: 048
     Dates: start: 20220815, end: 20220822
  24. PANTOPRAZOLE [Concomitant]
     Active Substance: PANTOPRAZOLE
     Indication: Short-bowel syndrome
     Dosage: 40 MILLIGRAM, QD
     Route: 048
     Dates: start: 20220609
  25. CEFEPIME [Concomitant]
     Active Substance: CEFEPIME HYDROCHLORIDE
     Indication: Staphylococcal infection
     Dosage: 1 GRAM
     Route: 042
     Dates: start: 20220810, end: 20220813
  26. REMDESIVIR [Concomitant]
     Active Substance: REMDESIVIR
     Indication: COVID-19
     Dosage: 200 MILLIGRAM, QD
     Route: 042
     Dates: start: 20220810, end: 20220813
  27. REMDESIVIR [Concomitant]
     Active Substance: REMDESIVIR
     Dosage: 100 MILLIGRAM, QD
     Route: 048
     Dates: start: 20220814, end: 20220816
  28. DEXTROSE [Concomitant]
     Active Substance: DEXTROSE
     Indication: Dehydration
     Dosage: 1000 MILLILITER
     Route: 042
     Dates: start: 20220811, end: 20220816
  29. SODIUM CHLORIDE [Concomitant]
     Active Substance: SODIUM CHLORIDE
     Indication: Dehydration
     Dosage: 1000 MILLILITER
     Route: 042
     Dates: start: 20220811, end: 20220816
  30. MAGNESIUM SULFATE [Concomitant]
     Active Substance: MAGNESIUM SULFATE
     Indication: Mineral deficiency
     Dosage: 150 MILLILITER, QD
     Route: 042
     Dates: start: 20220811, end: 20220812
  31. OXYCODONE [Concomitant]
     Active Substance: OXYCODONE
     Indication: Pain
     Dosage: 5 MILLIGRAM
     Route: 048
     Dates: start: 20220812, end: 20220816

REACTIONS (1)
  - COVID-19 [Recovered/Resolved]

NARRATIVE: CASE EVENT DATE: 20220810
